FAERS Safety Report 17199157 (Version 1)
Quarter: 2020Q3

REPORT INFORMATION
  Report Type: Report from Study
  Country: RU (occurrence: RU)
  Receive Date: 20191225
  Receipt Date: 20191225
  Transmission Date: 20201104
  Serious: Yes (Death, Life-Threatening, Hospitalization)
  Sender: FDA-Public Use
  Company Number: RU-ALEXION PHARMACEUTICALS INC.-A201917197

PATIENT
  Age: 45 Year
  Sex: Male
  Weight: 90 kg

DRUGS (19)
  1. RAVULIZUMAB. [Suspect]
     Active Substance: RAVULIZUMAB
     Dosage: 3300 MG, UNK
     Route: 042
     Dates: start: 20190821
  2. SULPERACEF [Concomitant]
     Indication: RESPIRATORY TRACT INFECTION
     Dosage: 2 G, BID
     Route: 042
     Dates: start: 20191104, end: 20191107
  3. QUAMATEL [Concomitant]
     Active Substance: FAMOTIDINE
     Indication: BACK PAIN
     Dosage: 20 MG, SINGLE
     Route: 042
     Dates: start: 20191108, end: 20191108
  4. RAVULIZUMAB. [Suspect]
     Active Substance: RAVULIZUMAB
     Dosage: 3300 MG, UNK
     Route: 042
     Dates: start: 20191015
  5. DEFERASIROX. [Concomitant]
     Active Substance: DEFERASIROX
     Indication: IRON OVERLOAD
     Dosage: 1500 MG, QD
     Route: 048
     Dates: start: 20180119
  6. LEVOFLOXACIN. [Concomitant]
     Active Substance: LEVOFLOXACIN
     Indication: ERYSIPELAS
     Dosage: 500 MG, BID
     Route: 048
     Dates: start: 20191003, end: 20191016
  7. ACICLOVIR [Concomitant]
     Active Substance: ACYCLOVIR
     Indication: RESPIRATORY TRACT INFECTION
     Dosage: 400 MG, BID
     Route: 048
     Dates: start: 20181104, end: 20191108
  8. VANCOMYCIN [Concomitant]
     Active Substance: VANCOMYCIN
     Indication: PNEUMONIA
     Dosage: 1 G, BID
     Route: 042
     Dates: start: 20191107, end: 20191108
  9. IMIPENEM [Concomitant]
     Active Substance: IMIPENEM
     Indication: PNEUMONIA
     Dosage: 1 G, BID
     Route: 042
     Dates: start: 20191107, end: 20191108
  10. QUAMATEL [Concomitant]
     Active Substance: FAMOTIDINE
     Indication: ABDOMINAL PAIN UPPER
  11. MORPHIN                            /00036303/ [Concomitant]
     Active Substance: MORPHINE
     Indication: BACK PAIN
     Dosage: 10 MG, SINGLE
     Route: 042
     Dates: start: 20191107, end: 20191107
  12. FENDIVIA [Concomitant]
     Active Substance: FENTANYL
     Indication: ERYSIPELAS
     Dosage: 500 ?G, THREE TIMES A WEEK
     Route: 062
     Dates: start: 20190910, end: 20191007
  13. RAVULIZUMAB. [Suspect]
     Active Substance: RAVULIZUMAB
     Indication: PAROXYSMAL NOCTURNAL HAEMOGLOBINURIA
     Dosage: 2700 MG, UNK
     Route: 042
     Dates: start: 20170410
  14. ATROVENT [Concomitant]
     Active Substance: IPRATROPIUM BROMIDE
     Indication: PNEUMONIA
     Dosage: 2 ML, TID
     Route: 055
     Dates: start: 20191108, end: 20191108
  15. METOPROLOL. [Concomitant]
     Active Substance: METOPROLOL
     Indication: ESSENTIAL HYPERTENSION
     Dosage: 25 MG, QD
     Route: 048
     Dates: start: 20170425
  16. BISEPTOL [Concomitant]
     Active Substance: SULFAMETHOXAZOLE\TRIMETHOPRIM
     Indication: RESPIRATORY TRACT INFECTION
     Dosage: 480 MG, BID
     Route: 048
     Dates: start: 20191104, end: 20191108
  17. METRONIDAZOLE. [Concomitant]
     Active Substance: METRONIDAZOLE
     Indication: ERYSIPELAS
     Dosage: 500 MG, TID
     Route: 048
     Dates: start: 20191003, end: 20191016
  18. MORPHIN                            /00036303/ [Concomitant]
     Active Substance: MORPHINE
     Indication: ABDOMINAL PAIN UPPER
     Dosage: 10 MG, SINGLE
     Route: 042
     Dates: start: 20191108, end: 20191108
  19. LASOLVAN [Concomitant]
     Active Substance: AMBROXOL HYDROCHLORIDE
     Indication: PNEUMONIA
     Dosage: 2 ML, TID
     Route: 055
     Dates: start: 20191108, end: 20191108

REACTIONS (2)
  - Aplastic anaemia [Not Recovered/Not Resolved]
  - Sepsis [Fatal]

NARRATIVE: CASE EVENT DATE: 20191104
